FAERS Safety Report 8287584-0 (Version None)
Quarter: 2012Q2

REPORT INFORMATION
  Report Type: 
  Country: None (occurrence: None)
  Receive Date: 20120416
  Receipt Date: 20120411
  Transmission Date: 20120825
  Serious: Yes (Death)
  Sender: FDA-Public Use
  Company Number: SA-ASTRAZENECA-2012SE23550

PATIENT
  Age: 33 Year
  Sex: Female
  Weight: 114 kg

DRUGS (4)
  1. SEROQUEL [Suspect]
     Indication: BIPOLAR I DISORDER
     Route: 048
     Dates: start: 20120406, end: 20120407
  2. LITHIUM [Concomitant]
     Route: 048
     Dates: start: 20120307, end: 20120407
  3. DEPAKENE [Concomitant]
     Route: 048
     Dates: start: 20120307, end: 20120407
  4. RISPERDAL [Suspect]
     Indication: BIPOLAR I DISORDER
     Route: 065
     Dates: start: 20120308, end: 20120407

REACTIONS (1)
  - SUDDEN DEATH [None]
